FAERS Safety Report 7589043-7 (Version None)
Quarter: 2011Q3

REPORT INFORMATION
  Report Type: 
  Country: None (occurrence: None)
  Receive Date: 20110705
  Receipt Date: 20110624
  Transmission Date: 20111222
  Serious: Yes (Life-Threatening, Hospitalization)
  Sender: FDA-Public Use
  Company Number: GB-JNJFOC-20100600145

PATIENT
  Age: 68 Year
  Sex: Female
  Weight: 55.8 kg

DRUGS (34)
  1. INFLIXIMAB [Suspect]
     Route: 042
     Dates: start: 20090301
  2. INFLIXIMAB [Suspect]
     Route: 042
     Dates: start: 20090415
  3. STELARA [Suspect]
     Route: 058
     Dates: start: 20090925
  4. STELARA [Suspect]
     Route: 058
     Dates: start: 20091203
  5. AZATHIOPRINE [Suspect]
     Route: 050
     Dates: start: 20091006, end: 20100506
  6. AZATHIOPRINE [Suspect]
     Route: 050
     Dates: start: 20080601
  7. GABAPENTIN [Concomitant]
  8. METOCLOPRAMIDE [Concomitant]
  9. PREDNISOLONE [Concomitant]
  10. STELARA [Suspect]
     Route: 058
     Dates: start: 20090925
  11. STELARA [Suspect]
     Route: 058
     Dates: start: 20090827
  12. STELARA [Suspect]
     Route: 058
     Dates: start: 20100101
  13. INFLIXIMAB [Suspect]
     Route: 042
     Dates: start: 20090527
  14. INFLIXIMAB [Suspect]
     Route: 042
     Dates: start: 20090428
  15. STELARA [Suspect]
     Indication: CROHN'S DISEASE
     Route: 058
     Dates: start: 20091203
  16. STELARA [Suspect]
     Route: 058
     Dates: start: 20091001
  17. RABEPRAZOLE SODIUM [Concomitant]
  18. ORAMORPH SR [Concomitant]
  19. INFLIXIMAB [Suspect]
     Route: 042
     Dates: start: 20090428
  20. INFLIXIMAB [Suspect]
     Route: 042
     Dates: start: 20090527
  21. AZATHIOPRINE [Suspect]
     Route: 050
     Dates: start: 20091201
  22. INFLIXIMAB [Suspect]
     Indication: PSORIASIS
     Route: 042
     Dates: start: 20090415
  23. STELARA [Suspect]
     Indication: PSORIASIS
     Route: 058
     Dates: start: 20090827
  24. HUMIRA [Suspect]
     Indication: ILL-DEFINED DISORDER
     Route: 050
     Dates: start: 20080401
  25. AZATHIOPRINE [Suspect]
     Indication: PSORIASIS
     Route: 050
     Dates: start: 20091001
  26. AZATHIOPRINE [Suspect]
     Route: 050
     Dates: start: 20091001
  27. INFLIXIMAB [Suspect]
     Route: 042
     Dates: start: 20090723, end: 20090723
  28. INFLIXIMAB [Suspect]
     Route: 042
     Dates: start: 20090301
  29. INFLIXIMAB [Suspect]
     Indication: CROHN'S DISEASE
     Route: 042
     Dates: start: 20090723, end: 20090723
  30. AZATHIOPRINE [Suspect]
     Route: 050
     Dates: start: 20091006, end: 20100506
  31. STELARA [Suspect]
     Route: 058
     Dates: start: 20100101
  32. STELARA [Suspect]
     Route: 058
     Dates: start: 20091001
  33. AZATHIOPRINE [Suspect]
     Indication: CROHN'S DISEASE
     Route: 050
     Dates: start: 20091201
  34. AZATHIOPRINE [Suspect]
     Route: 050
     Dates: start: 20080601

REACTIONS (5)
  - CROHN'S DISEASE [None]
  - DRUG INEFFECTIVE [None]
  - PERIPHERAL T-CELL LYMPHOMA UNSPECIFIED [None]
  - NECK PAIN [None]
  - HOSPITALISATION [None]
